FAERS Safety Report 9053709 (Version 1)
Quarter: 2013Q1

REPORT INFORMATION
  Report Type: Spontaneous
  Country: NL (occurrence: NL)
  Receive Date: 20130208
  Receipt Date: 20130208
  Transmission Date: 20140127
  Serious: Yes (Hospitalization)
  Sender: FDA-Public Use
  Company Number: NL-009507513-1302NLD003137

PATIENT
  Age: 78 Year
  Sex: Female

DRUGS (6)
  1. SIMVASTATIN [Suspect]
     Indication: HYPERCHOLESTEROLAEMIA
     Dosage: 40 MG, QD
     Dates: start: 20121130, end: 20121229
  2. ENALAPRIL MALEATE [Concomitant]
     Dosage: 20 MG, BID
  3. CARBASPIRIN CALCIUM [Concomitant]
     Dosage: 100 MG, QD (CARBASALATE CALCIUM)
  4. FUROSEMIDE [Concomitant]
     Dosage: 40 MG, QD
  5. SPIRONOLACTONE [Concomitant]
     Dosage: 25 MG, QD
  6. HYDROCHLORTHIAZID [Concomitant]
     Dosage: 25 MG, QD

REACTIONS (2)
  - Pain [Recovered/Resolved]
  - Myopathy [Recovered/Resolved]
